FAERS Safety Report 5000740-X (Version None)
Quarter: 2006Q2

REPORT INFORMATION
  Report Type: 
  Country: None (occurrence: None)
  Receive Date: 20060512
  Receipt Date: 20060503
  Transmission Date: 20061013
  Serious: Yes (Death, Other)
  Sender: FDA-Public Use
  Company Number: PHBS2006US06707

PATIENT
  Age: 35 Year
  Sex: Female

DRUGS (3)
  1. CYCLOSPORINE [Suspect]
     Indication: RENAL TRANSPLANT
     Dosage: 250 MG/D
     Route: 065
  2. PREDNISONE TAB [Suspect]
     Indication: RENAL TRANSPLANT
     Dosage: 7 MG/D
     Route: 065
  3. FUROSEMIDE [Concomitant]
     Dosage: 10 MG/D
     Route: 065

REACTIONS (8)
  - CHORIORETINOPATHY [None]
  - HAEMODIALYSIS [None]
  - KIDNEY TRANSPLANT REJECTION [None]
  - LASER THERAPY [None]
  - RENAL FAILURE [None]
  - RETINAL DETACHMENT [None]
  - SUBRETINAL FIBROSIS [None]
  - THERAPEUTIC PROCEDURE [None]
